FAERS Safety Report 7540255-8 (Version None)
Quarter: 2011Q2

REPORT INFORMATION
  Report Type: 
  Country: None (occurrence: None)
  Receive Date: 20110610
  Receipt Date: 20110530
  Transmission Date: 20111010
  Serious: Yes (Death, Hospitalization, Other)
  Sender: FDA-Public Use
  Company Number: PHHY2011JP47300

PATIENT
  Sex: Male

DRUGS (3)
  1. ZOLEDRONIC ACID [Suspect]
     Indication: BONE LESION
     Dosage: 4 MG, (SINGLE DOSE)
     Route: 041
     Dates: start: 20071227, end: 20071227
  2. PENTAZOCINE LACTATE [Concomitant]
     Dosage: UNK
     Route: 048
     Dates: start: 20080110
  3. DICLOFENAC SODIUM [Concomitant]
     Dosage: 75 MG, UNK
     Route: 048
     Dates: start: 20071227

REACTIONS (4)
  - NEOPLASM PROGRESSION [None]
  - NEOPLASM MALIGNANT [None]
  - BACK PAIN [None]
  - PNEUMONIA [None]
